FAERS Safety Report 10809698 (Version 1)
Quarter: 2015Q1

REPORT INFORMATION
  Report Type: Spontaneous
  Country: US (occurrence: None)
  Receive Date: 20150212
  Receipt Date: 20150212
  Transmission Date: 20150721
  Serious: Yes (Hospitalization)
  Sender: FDA-Public Use
  Company Number: None

PATIENT
  Age: 14 Month
  Sex: Female
  Weight: 8.6 kg

DRUGS (2)
  1. IBUPROFEN. [Suspect]
     Active Substance: IBUPROFEN
     Indication: PYREXIA
  2. ACETAMINOPHEN. [Concomitant]
     Active Substance: ACETAMINOPHEN

REACTIONS (4)
  - Body temperature increased [None]
  - Feeling abnormal [None]
  - Drug dispensing error [None]
  - Accidental overdose [None]

NARRATIVE: CASE EVENT DATE: 20150208
